FAERS Safety Report 14831838 (Version 1)
Quarter: 2018Q2

REPORT INFORMATION
  Report Type: Spontaneous
  Country: US (occurrence: US)
  Receive Date: 20180410
  Receipt Date: 20180410
  Transmission Date: 20180711
  Serious: Yes (Other)
  Sender: FDA-Public Use
  Company Number: None

PATIENT
  Age: 34 Year
  Sex: Female
  Weight: 55.08 kg

DRUGS (1)
  1. BUPRENORPHINE/NALOXONE [Suspect]
     Active Substance: BUPRENORPHINE\NALOXONE
     Indication: DRUG DEPENDENCE
     Route: 002
     Dates: start: 20180307

REACTIONS (5)
  - Headache [None]
  - Abdominal pain [None]
  - Decreased appetite [None]
  - Weight decreased [None]
  - Drug dependence [None]

NARRATIVE: CASE EVENT DATE: 20180307
